FAERS Safety Report 5425778-X (Version None)
Quarter: 2007Q3

REPORT INFORMATION
  Report Type: 
  Country: None (occurrence: None)
  Receive Date: 20070825
  Receipt Date: 20070816
  Transmission Date: 20080115
  Serious: Yes (Hospitalization, Other)
  Sender: FDA-Public Use
  Company Number: US-MERCK-0606USA03367

PATIENT
  Age: 78 Year
  Sex: Female
  Weight: 69 kg

DRUGS (32)
  1. FOSAMAX [Suspect]
     Indication: OSTEOPOROSIS
     Route: 048
     Dates: start: 19980806, end: 20060501
  2. FOSAMAX [Suspect]
     Indication: OSTEOPENIA
     Route: 048
     Dates: start: 19980806, end: 20060501
  3. PROCARDIA [Concomitant]
     Route: 065
  4. LASIX [Concomitant]
     Route: 065
  5. DYAZIDE [Concomitant]
     Route: 065
  6. CATAPRES [Concomitant]
     Route: 065
  7. LIPITOR [Concomitant]
     Route: 065
  8. ATENOLOL [Concomitant]
     Route: 065
  9. ATIVAN [Concomitant]
     Indication: ANXIETY
     Route: 065
  10. ATIVAN [Concomitant]
     Indication: DEPRESSION
     Route: 065
  11. COUMADIN [Concomitant]
     Route: 065
     Dates: start: 19980914
  12. LORTAB [Concomitant]
     Route: 065
  13. CALCIUM (UNSPECIFIED) [Concomitant]
     Route: 065
     Dates: start: 19980806
  14. VITAMIN D (UNSPECIFIED) [Concomitant]
     Route: 065
  15. LORCET-HD [Concomitant]
     Indication: ARTHRALGIA
     Route: 065
  16. LORCET-HD [Concomitant]
     Indication: BACK PAIN
     Route: 065
  17. ZOCOR [Concomitant]
     Route: 048
     Dates: start: 19980914
  18. TORADOL [Concomitant]
     Route: 065
     Dates: start: 19991028
  19. DIFLUCAN [Concomitant]
     Indication: ORAL CANDIDIASIS
     Route: 065
     Dates: start: 19991118
  20. RACEPHEN [Concomitant]
     Route: 065
     Dates: start: 19991118
  21. PHYTONADIONE [Concomitant]
     Route: 065
     Dates: start: 19991129
  22. LIMBITROL TABLETS [Concomitant]
     Indication: ANXIETY
     Route: 065
     Dates: end: 20010820
  23. LIMBITROL TABLETS [Concomitant]
     Indication: DEPRESSION
     Route: 065
     Dates: end: 20010820
  24. ASCAL [Concomitant]
     Indication: COLITIS ULCERATIVE
     Route: 065
  25. MOBIC [Concomitant]
     Indication: ARTHRITIS
     Route: 065
     Dates: end: 20010820
  26. SYNTHROID [Concomitant]
     Route: 065
  27. AMBIEN [Concomitant]
     Route: 065
  28. VIOXX [Concomitant]
     Indication: ARTHRITIS
     Route: 048
     Dates: end: 20010820
  29. VOLTAREN [Concomitant]
     Indication: ARTHRITIS
     Route: 065
     Dates: end: 20010808
  30. LOMOTIL [Concomitant]
     Route: 065
     Dates: start: 20031002
  31. ICAR-C PLUS [Concomitant]
     Route: 065
  32. LEVAQUIN [Concomitant]
     Route: 065

REACTIONS (26)
  - ARTHRITIS [None]
  - BONE PAIN [None]
  - BURSITIS [None]
  - CELLULITIS [None]
  - CEREBROVASCULAR ACCIDENT [None]
  - CONSTIPATION [None]
  - CONTUSION [None]
  - CYSTITIS [None]
  - DEPRESSION [None]
  - DRUG HYPERSENSITIVITY [None]
  - FALL [None]
  - FOREARM FRACTURE [None]
  - HAEMATURIA [None]
  - HAND FRACTURE [None]
  - HEADACHE [None]
  - HYPERSENSITIVITY [None]
  - HYPOTHYROIDISM [None]
  - INTERNATIONAL NORMALISED RATIO INCREASED [None]
  - LACERATION [None]
  - OSTEOMYELITIS [None]
  - OSTEONECROSIS [None]
  - PNEUMONIA [None]
  - PRURITUS [None]
  - RENAL FAILURE [None]
  - ROTATOR CUFF SYNDROME [None]
  - THROMBOCYTOPENIA [None]
